FAERS Safety Report 8810013 (Version 1)
Quarter: 2012Q4

REPORT INFORMATION
  Report Type: 
  Country: DE (occurrence: FR)
  Receive Date: 20120926
  Receipt Date: 20120926
  Transmission Date: 20130627
  Serious: Yes (Other)
  Sender: FDA-Public Use
  Company Number: FR-BRISTOL-MYERS SQUIBB COMPANY-16988206

PATIENT
  Age: 78 Year
  Sex: Female

DRUGS (7)
  1. METFORMIN HCL [Suspect]
     Indication: TYPE 2 DIABETES MELLITUS
     Dosage: Ongoing
     Route: 048
  2. LEVOTHYROX [Suspect]
     Indication: HYPOTHYROIDISM
     Dosage: Tablet.Ongoing
     Route: 048
  3. PREVISCAN [Suspect]
     Indication: PULMONARY ARTERIAL HYPERTENSION
     Dosage: Tablet.Ongoing
     Route: 048
  4. LASILIX [Suspect]
     Indication: PULMONARY ARTERIAL HYPERTENSION
     Dosage: Ongoing
     Route: 048
  5. TRACLEER [Suspect]
     Dosage: Ongoing
     Route: 048
  6. REVATIO [Suspect]
     Dosage: Ongoing
     Route: 048
  7. VENTAVIS [Suspect]
     Dosage: Ongoing
     Route: 048
     Dates: start: 201109

REACTIONS (1)
  - Eosinophilia [Not Recovered/Not Resolved]
